FAERS Safety Report 7347541-5 (Version None)
Quarter: 2011Q1

REPORT INFORMATION
  Report Type: 
  Country: None (occurrence: None)
  Receive Date: 20110311
  Receipt Date: 20110304
  Transmission Date: 20110831
  Serious: Yes (Hospitalization)
  Sender: FDA-Public Use
  Company Number: US-BRISTOL-MYERS SQUIBB COMPANY-15591332

PATIENT
  Age: 62 Year
  Sex: Female

DRUGS (2)
  1. COUMADIN [Suspect]
  2. LOVENOX [Suspect]
     Dosage: DOSE INCREASED FROM 40 OR 60MG TO 80MG. 2011-2011,2011-ONGOING
     Dates: start: 20110101

REACTIONS (4)
  - PULMONARY EMBOLISM [None]
  - INJECTION SITE HAEMATOMA [None]
  - DEEP VEIN THROMBOSIS [None]
  - INTERNATIONAL NORMALISED RATIO DECREASED [None]
